FAERS Safety Report 20008246 (Version 1)
Quarter: 2021Q4

REPORT INFORMATION
  Report Type: Spontaneous
  Country: BG (occurrence: BG)
  Receive Date: 20211029
  Receipt Date: 20211029
  Transmission Date: 20220304
  Serious: Yes (Death, Hospitalization)
  Sender: FDA-Public Use
  Company Number: BG-ROCHE-2942846

PATIENT
  Age: 66 Year
  Sex: Male

DRUGS (1)
  1. TOCILIZUMAB [Suspect]
     Active Substance: TOCILIZUMAB
     Indication: COVID-19
     Route: 042
     Dates: start: 20211018, end: 20211018

REACTIONS (2)
  - Off label use [Fatal]
  - COVID-19 [Fatal]

NARRATIVE: CASE EVENT DATE: 20211020
